FAERS Safety Report 13501443 (Version 3)
Quarter: 2017Q3

REPORT INFORMATION
  Report Type: Spontaneous
  Country: US (occurrence: US)
  Receive Date: 20170501
  Receipt Date: 20170713
  Transmission Date: 20171127
  Serious: Yes (Other)
  Sender: FDA-Public Use
  Company Number: US-ROCHE-1857618

PATIENT
  Age: 78 Year
  Sex: Male

DRUGS (4)
  1. ESBRIET [Suspect]
     Active Substance: PIRFENIDONE
     Indication: IDIOPATHIC PULMONARY FIBROSIS
     Route: 048
     Dates: start: 20150601
  2. ESBRIET [Suspect]
     Active Substance: PIRFENIDONE
     Route: 048
     Dates: start: 20161114
  3. PREDNISONE. [Suspect]
     Active Substance: PREDNISONE
     Indication: PRODUCT USED FOR UNKNOWN INDICATION
     Dosage: DAILY
     Route: 065
  4. PREDNISONE. [Suspect]
     Active Substance: PREDNISONE
     Route: 065
     Dates: start: 20170615

REACTIONS (7)
  - Pruritus [Unknown]
  - Urticaria [Recovered/Resolved]
  - Visual impairment [Recovered/Resolved]
  - Tremor [Recovered/Resolved]
  - Skin exfoliation [Recovered/Resolved]
  - Erythema [Recovered/Resolved]
  - Sunburn [Unknown]

NARRATIVE: CASE EVENT DATE: 20161024
